FAERS Safety Report 12211093 (Version 1)
Quarter: 2016Q1

REPORT INFORMATION
  Report Type: Spontaneous
  Country: GB (occurrence: GB)
  Receive Date: 20160325
  Receipt Date: 20160325
  Transmission Date: 20160526
  Serious: Yes (Other)
  Sender: FDA-Public Use
  Company Number: GB-PFIZER INC-2016168654

PATIENT
  Sex: Female

DRUGS (2)
  1. HERCEPTIN [Suspect]
     Active Substance: TRASTUZUMAB
     Dosage: 600 MG, UNK
     Route: 058
  2. EXEMESTANE. [Suspect]
     Active Substance: EXEMESTANE
     Dosage: 25 MG, UNK

REACTIONS (14)
  - Paraesthesia [Unknown]
  - Fatigue [Unknown]
  - Food intolerance [Unknown]
  - Pollakiuria [Unknown]
  - Joint swelling [Unknown]
  - Pain [Unknown]
  - Constipation [Unknown]
  - Abdominal pain upper [Unknown]
  - Decreased appetite [Recovering/Resolving]
  - Malaise [Unknown]
  - Nausea [Unknown]
  - White blood cells urine [Unknown]
  - Dysgeusia [Unknown]
  - Depressed mood [Unknown]
